FAERS Safety Report 5572570-1 (Version None)
Quarter: 2007Q4

REPORT INFORMATION
  Report Type: 
  Country: None (occurrence: None)
  Receive Date: 20071130
  Receipt Date: 20070424
  Transmission Date: 20080405
  Serious: Yes (Other)
  Sender: FDA-Public Use
  Company Number: WAES 0704USA05512

PATIENT
  Age: 80 Year
  Sex: Female

DRUGS (2)
  1. FOSAMAX [Suspect]
     Indication: OSTEOPOROSIS
     Dosage: 70 MG WKY PO
     Route: 048
     Dates: start: 20010401, end: 20060717
  2. ACTONEL [Suspect]
     Dates: start: 20060717

REACTIONS (2)
  - GASTRIC DISORDER [None]
  - OSTEONECROSIS [None]
